FAERS Safety Report 13573346 (Version 4)
Quarter: 2017Q3

REPORT INFORMATION
  Report Type: Spontaneous
  Country: KR (occurrence: KR)
  Receive Date: 20170523
  Receipt Date: 20170803
  Transmission Date: 20171127
  Serious: Yes (Hospitalization, Other)
  Sender: FDA-Public Use
  Company Number: KR-009507513-1705KOR011151

PATIENT
  Age: 74 Year
  Sex: Male
  Weight: 48.9 kg

DRUGS (33)
  1. DEXAMETHASONE. [Concomitant]
     Active Substance: DEXAMETHASONE
     Dosage: 8 MG, BID
     Route: 048
     Dates: start: 20170303, end: 20170303
  2. MEVALOTIN [Concomitant]
     Active Substance: PRAVASTATIN SODIUM
     Indication: HYPERLIPIDAEMIA
     Dosage: 40 MG, QD
     Route: 048
  3. EMEND (FOSAPREPITANT DIMEGLUMINE) [Suspect]
     Active Substance: FOSAPREPITANT DIMEGLUMINE
     Dosage: 150 MG, ONCE
     Route: 042
     Dates: start: 20170309, end: 20170309
  4. CISPLATIN. [Concomitant]
     Active Substance: CISPLATIN
     Indication: LARYNGEAL CANCER STAGE III
     Dosage: 40 MG, QD
     Route: 042
     Dates: start: 20170213, end: 20170213
  5. DEXAMETHASONE SODIUM PHOSPHATE. [Concomitant]
     Active Substance: DEXAMETHASONE SODIUM PHOSPHATE
     Dosage: 10 MG, QD
     Route: 042
     Dates: start: 20170309, end: 20170309
  6. EMEND (FOSAPREPITANT DIMEGLUMINE) [Suspect]
     Active Substance: FOSAPREPITANT DIMEGLUMINE
     Indication: PROPHYLAXIS OF NAUSEA AND VOMITING
     Dosage: 150 MG, ONCE
     Route: 042
     Dates: start: 20170213, end: 20170213
  7. CISPLATIN. [Concomitant]
     Active Substance: CISPLATIN
     Dosage: 40 MG, QD
     Route: 042
     Dates: start: 20170222, end: 20170222
  8. DEXAMETHASONE SODIUM PHOSPHATE. [Concomitant]
     Active Substance: DEXAMETHASONE SODIUM PHOSPHATE
     Dosage: 10 MG, QD
     Route: 042
     Dates: start: 20170302, end: 20170302
  9. SANCUSO [Concomitant]
     Active Substance: GRANISETRON
     Indication: PREMEDICATION
     Dosage: 80.2X66.6MM2 PATCH, 1 PK, ROUTE EXT
     Dates: start: 20170211, end: 20170213
  10. HUMALOG [Concomitant]
     Active Substance: INSULIN LISPRO
     Indication: DIABETES MELLITUS
     Dosage: 0.1 ML, QD
     Route: 058
  11. SCD MAGNESIUM OXIDE [Concomitant]
     Indication: PROPHYLAXIS
     Dosage: 250 MG, TID
     Route: 048
     Dates: start: 20170210
  12. JANUVIA [Concomitant]
     Active Substance: SITAGLIPTIN PHOSPHATE
     Indication: DIABETES MELLITUS
     Dosage: 100 MG, QD
     Route: 048
  13. EMEND (FOSAPREPITANT DIMEGLUMINE) [Suspect]
     Active Substance: FOSAPREPITANT DIMEGLUMINE
     Dosage: 150 MG, ONCE
     Route: 042
     Dates: start: 20170302, end: 20170302
  14. CISPLATIN. [Concomitant]
     Active Substance: CISPLATIN
     Dosage: 40 MG, QD
     Route: 042
     Dates: start: 20170302, end: 20170302
  15. DEXAMETHASONE SODIUM PHOSPHATE. [Concomitant]
     Active Substance: DEXAMETHASONE SODIUM PHOSPHATE
     Indication: PREMEDICATION
     Dosage: 10 MG, QD
     Route: 042
     Dates: start: 20170213, end: 20170213
  16. DEXAMETHASONE. [Concomitant]
     Active Substance: DEXAMETHASONE
     Dosage: 8 MG, BID
     Route: 048
     Dates: start: 20170223, end: 20170223
  17. SANCUSO [Concomitant]
     Active Substance: GRANISETRON
     Dosage: 80.2X66.6MM2 PATCH, 1 PK, ROUTE EXT
     Dates: start: 20170216, end: 20170221
  18. ASPIRIN. [Concomitant]
     Active Substance: ASPIRIN
     Indication: CEREBROVASCULAR ACCIDENT PROPHYLAXIS
     Dosage: 100 MG, QD
     Route: 048
  19. LANTUS [Concomitant]
     Active Substance: INSULIN GLARGINE
     Indication: DIABETES MELLITUS
     Dosage: 3 ML, QD
     Route: 058
  20. HUMALOG PEN [Concomitant]
     Active Substance: INSULIN LISPRO
     Indication: DIABETES MELLITUS
     Dosage: 3 ML, QD
     Route: 058
  21. HARNAL [Concomitant]
     Active Substance: TAMSULOSIN HYDROCHLORIDE
     Indication: PROPHYLAXIS
     Dosage: 0.2 MG, QD
     Route: 048
  22. CISPLATIN. [Concomitant]
     Active Substance: CISPLATIN
     Dosage: 40 MG, QD
     Route: 042
     Dates: start: 20170309, end: 20170309
  23. GLUCERA [Concomitant]
     Indication: HYPERTENSION
     Dosage: 500 MG, QD
     Route: 048
  24. DEXAMETHASONE. [Concomitant]
     Active Substance: DEXAMETHASONE
     Dosage: 8 MG, BID
     Route: 048
     Dates: start: 20170310, end: 20170310
  25. SANCUSO [Concomitant]
     Active Substance: GRANISETRON
     Dosage: 80.2X66.6MM2 PATCH, 1 PK, ROUTE EXT
     Dates: start: 20170308, end: 20170310
  26. NASONEX [Concomitant]
     Active Substance: MOMETASONE FUROATE
     Indication: PROPHYLAXIS
     Dosage: 1 BTL, QD
     Route: 045
     Dates: start: 20170218, end: 20170218
  27. SANCUSO [Concomitant]
     Active Substance: GRANISETRON
     Dosage: 80.2X66.6MM2 PATCH, 1 PK, ROUTE EXT
     Dates: start: 20170228, end: 20170302
  28. EMEND (FOSAPREPITANT DIMEGLUMINE) [Suspect]
     Active Substance: FOSAPREPITANT DIMEGLUMINE
     Dosage: 150 MG, ONCE
     Route: 042
     Dates: start: 20170222, end: 20170222
  29. DEXAMETHASONE SODIUM PHOSPHATE. [Concomitant]
     Active Substance: DEXAMETHASONE SODIUM PHOSPHATE
     Dosage: 10 MG, QD
     Route: 042
     Dates: start: 20170222, end: 20170222
  30. DEXAMETHASONE. [Concomitant]
     Active Substance: DEXAMETHASONE
     Indication: PROPHYLAXIS
     Dosage: 8 MG, BID
     Route: 048
     Dates: start: 20170214, end: 20170217
  31. LASIX [Concomitant]
     Active Substance: FUROSEMIDE
     Indication: PROPHYLAXIS
     Dosage: 20 MG, QD
     Dates: start: 20170214, end: 20170315
  32. DUPHALAC [Concomitant]
     Active Substance: LACTULOSE
     Indication: CONSTIPATION PROPHYLAXIS
     Dosage: 1 PK, TID
     Route: 048
     Dates: start: 20170214, end: 20170315
  33. MEGACE [Concomitant]
     Active Substance: MEGESTROL ACETATE
     Dosage: 1 PK, QD
     Route: 048
     Dates: start: 20170208

REACTIONS (4)
  - Aspiration [Recovered/Resolved]
  - Erythema [Recovering/Resolving]
  - Dysphagia [Recovered/Resolved]
  - Productive cough [Recovering/Resolving]

NARRATIVE: CASE EVENT DATE: 20170218
